FAERS Safety Report 5861735-7 (Version None)
Quarter: 2008Q3

REPORT INFORMATION
  Report Type: 
  Country: None (occurrence: None)
  Receive Date: 20080826
  Receipt Date: 20080811
  Transmission Date: 20090109
  Serious: Yes (Death, Hospitalization)
  Sender: FDA-Public Use
  Company Number: 2008BM000076

PATIENT
  Age: 9 Year
  Sex: Male
  Weight: 16 kg

DRUGS (12)
  1. NAGLAZYME [Suspect]
     Indication: MUCOPOLYSACCHARIDOSIS VI
     Dosage: 15 MG; 1X; IV
     Route: 042
     Dates: start: 20080319, end: 20080319
  2. TAZOCIN [Concomitant]
  3. MIDAZOLAM HCL [Concomitant]
  4. DOPAMINE HCL [Concomitant]
  5. DEXAMETHASONE TAB [Concomitant]
  6. DOBUTAMINE HCL [Concomitant]
  7. DIGOXIN [Concomitant]
  8. PHENOBARBITAL TAB [Concomitant]
  9. ACETAMINOPHEN [Concomitant]
  10. SPIRONOLACTONE [Concomitant]
  11. ACETYLCYSTEINE [Concomitant]
  12. MILRINONE LACTATE [Concomitant]

REACTIONS (2)
  - KLEBSIELLA SEPSIS [None]
  - PSEUDOMONAL SEPSIS [None]
